FAERS Safety Report 11605628 (Version 1)
Quarter: 2015Q4

REPORT INFORMATION
  Report Type: Spontaneous
  Country: FR (occurrence: FR)
  Receive Date: 20151007
  Receipt Date: 20151007
  Transmission Date: 20160304
  Serious: Yes (Other)
  Sender: FDA-Public Use
  Company Number: FR-LINDE GAS NORTH AMERICA LLC-FR-LHC-2015132

PATIENT
  Age: 10 Year
  Sex: Female

DRUGS (1)
  1. NITROUS OXIDE (GENERIC) [Suspect]
     Active Substance: NITROUS OXIDE
     Indication: OSTEOMYELITIS

REACTIONS (3)
  - Enzyme inhibition [Recovered/Resolved]
  - Condition aggravated [Recovered/Resolved]
  - Vitamin B12 deficiency [Recovered/Resolved]
